FAERS Safety Report 7901662-4 (Version None)
Quarter: 2011Q4

REPORT INFORMATION
  Report Type: 
  Country: None (occurrence: None)
  Receive Date: 20111108
  Receipt Date: 20111031
  Transmission Date: 20120403
  Serious: Yes (Life-Threatening, Hospitalization)
  Sender: FDA-Public Use
  Company Number: CZ-BAXTER-2011BH035117

PATIENT
  Age: 9 Year
  Sex: Male
  Weight: 25 kg

DRUGS (19)
  1. VORICONAZOLE [Suspect]
     Indication: OESOPHAGEAL CANDIDIASIS
     Route: 042
     Dates: start: 20110921, end: 20110922
  2. VORICONAZOLE [Suspect]
     Route: 042
     Dates: start: 20110917, end: 20110921
  3. FORTECORTIN [Suspect]
     Route: 048
     Dates: start: 20111004, end: 20111007
  4. DEXAMETHASONE SODIUM PHOSPHATE [Suspect]
     Indication: CHEMOTHERAPY
     Route: 042
     Dates: start: 20111007, end: 20111009
  5. FUROSEMIDE [Concomitant]
     Indication: DIURETIC THERAPY
     Route: 042
     Dates: start: 20111004
  6. METHOTREXATE [Suspect]
     Indication: CHEMOTHERAPY
     Route: 038
     Dates: start: 20111005, end: 20111005
  7. PREDNISOLONE [Suspect]
     Indication: CHEMOTHERAPY
     Route: 038
     Dates: start: 20111005, end: 20111005
  8. OMEPRAZOLE [Concomitant]
     Indication: GASTRITIS PROPHYLAXIS
     Route: 042
     Dates: start: 20111007, end: 20111008
  9. ACETAMINOPHEN [Concomitant]
     Indication: PAIN
     Route: 042
     Dates: start: 20111004
  10. VINCRISTINE SULFATE [Suspect]
     Indication: CHEMOTHERAPY
     Route: 042
     Dates: start: 20111004, end: 20111004
  11. METAMIZOLE SODIUM [Concomitant]
     Indication: PAIN
     Route: 042
     Dates: start: 20111004
  12. CYTARABINE [Suspect]
     Indication: CHEMOTHERAPY
     Route: 038
     Dates: start: 20111005, end: 20111005
  13. FORTECORTIN [Suspect]
     Indication: CHEMOTHERAPY
     Route: 048
     Dates: start: 20111004, end: 20111007
  14. CYCLOPHOSPHAMIDE [Suspect]
     Indication: CHEMOTHERAPY
     Route: 042
     Dates: start: 20111005, end: 20111008
  15. DEXAMETHASONE SODIUM PHOSPHATE [Suspect]
     Route: 042
     Dates: start: 20111007, end: 20111009
  16. DOXORUBICIN HCL [Suspect]
     Indication: CHEMOTHERAPY
     Route: 042
     Dates: start: 20111007, end: 20111008
  17. METHOTREXATE [Suspect]
     Route: 042
     Dates: start: 20111004, end: 20111004
  18. ZOFRAN [Concomitant]
     Indication: VOMITING
     Route: 042
     Dates: start: 20111004, end: 20111009
  19. BACLOFEN [Concomitant]
     Indication: PAIN
     Route: 048
     Dates: start: 20111006

REACTIONS (1)
  - POSTERIOR REVERSIBLE ENCEPHALOPATHY SYNDROME [None]
